FAERS Safety Report 12332774 (Version 1)
Quarter: 2016Q2

REPORT INFORMATION
  Report Type: Spontaneous
  Country: US (occurrence: US)
  Receive Date: 20160504
  Receipt Date: 20160504
  Transmission Date: 20160815
  Serious: No
  Sender: FDA-Public Use
  Company Number: US-ROCHE-1644160

PATIENT
  Sex: Male

DRUGS (1)
  1. ESBRIET [Suspect]
     Active Substance: PIRFENIDONE
     Indication: IDIOPATHIC PULMONARY FIBROSIS
     Route: 048
     Dates: end: 201508

REACTIONS (4)
  - Muscle spasms [Recovering/Resolving]
  - Local swelling [Recovering/Resolving]
  - Musculoskeletal stiffness [Recovering/Resolving]
  - Skin irritation [Recovering/Resolving]
